FAERS Safety Report 9763458 (Version 1)
Quarter: 2013Q4

REPORT INFORMATION
  Report Type: Spontaneous
  Country: US (occurrence: US)
  Receive Date: 20131216
  Receipt Date: 20131216
  Transmission Date: 20140711
  Serious: No
  Sender: FDA-Public Use
  Company Number: US-BIOGENIDEC-2013BI105273

PATIENT
  Age: 61 Year
  Sex: Male

DRUGS (10)
  1. TECFIDERA [Suspect]
     Indication: MULTIPLE SCLEROSIS
     Route: 048
     Dates: start: 20131010
  2. AFRIN [Concomitant]
  3. AMANTADINE HCL [Concomitant]
  4. BUTALBITAL-APAP-CAFFEINE [Concomitant]
  5. EXCEDRIN [Concomitant]
  6. FLUOXETINE HCL [Concomitant]
  7. LISINOPRIL [Concomitant]
  8. OMEPRAZOLE [Concomitant]
  9. OXYBUTYNIN CHLORIDE [Concomitant]
  10. PREDNISONE [Concomitant]

REACTIONS (1)
  - Abdominal discomfort [Unknown]
